FAERS Safety Report 13511883 (Version 5)
Quarter: 2017Q3

REPORT INFORMATION
  Report Type: Spontaneous
  Country: JP (occurrence: JP)
  Receive Date: 20170504
  Receipt Date: 20170731
  Transmission Date: 20171127
  Serious: Yes (Other)
  Sender: FDA-Public Use
  Company Number: JP-BIOGEN-2017BI00392588

PATIENT
  Age: 30 Year
  Sex: Female
  Weight: 55 kg

DRUGS (2)
  1. TYSABRI [Suspect]
     Active Substance: NATALIZUMAB
     Indication: MULTIPLE SCLEROSIS
     Route: 041
     Dates: start: 20160119
  2. TYSABRI [Suspect]
     Active Substance: NATALIZUMAB
     Route: 041
     Dates: start: 20170515, end: 201706

REACTIONS (4)
  - Guillain-Barre syndrome [Recovered/Resolved]
  - Cognitive disorder [Unknown]
  - Autoimmune hepatitis [Unknown]
  - Dysarthria [Unknown]

NARRATIVE: CASE EVENT DATE: 20170411
